FAERS Safety Report 11539121 (Version 2)
Quarter: 2015Q4

REPORT INFORMATION
  Report Type: Spontaneous
  Country: US (occurrence: US)
  Receive Date: 20150923
  Receipt Date: 20151103
  Transmission Date: 20160304
  Serious: No
  Sender: FDA-Public Use
  Company Number: PHEH2015US018433

PATIENT
  Sex: Female

DRUGS (1)
  1. EXELON PATCH [Suspect]
     Active Substance: RIVASTIGMINE
     Indication: PRODUCT USED FOR UNKNOWN INDICATION
     Dosage: 4.6 MG/24H (09 MG DAILY RIVASTIGMINE BASE, PATCH 5 (CM2))
     Route: 062

REACTIONS (3)
  - Back pain [Unknown]
  - Nausea [Unknown]
  - Hallucination [Unknown]
